FAERS Safety Report 7568652-5 (Version None)
Quarter: 2011Q2

REPORT INFORMATION
  Report Type: 
  Country: None (occurrence: None)
  Receive Date: 20110623
  Receipt Date: 20110614
  Transmission Date: 20111010
  Serious: Yes (Other)
  Sender: FDA-Public Use
  Company Number: US-JNJFOC-20110507763

PATIENT
  Sex: Female
  Weight: 62.14 kg

DRUGS (1)
  1. SIMPONI [Suspect]
     Indication: RHEUMATOID ARTHRITIS
     Route: 058
     Dates: start: 20110101

REACTIONS (3)
  - SHOULDER ARTHROPLASTY [None]
  - DRUG DOSE OMISSION [None]
  - SYRINGE ISSUE [None]
